FAERS Safety Report 14619504 (Version 2)
Quarter: 2018Q2

REPORT INFORMATION
  Report Type: Spontaneous
  Country: US (occurrence: US)
  Receive Date: 20180309
  Receipt Date: 20180406
  Transmission Date: 20180711
  Serious: No
  Sender: FDA-Public Use
  Company Number: US-ASTRAZENECA-2018SE19002

PATIENT
  Age: 27622 Day
  Sex: Female
  Weight: 86.2 kg

DRUGS (2)
  1. BYDUREON [Suspect]
     Active Substance: EXENATIDE
     Indication: TYPE 2 DIABETES MELLITUS
     Route: 058
     Dates: start: 2017
  2. INSULIN [Concomitant]
     Active Substance: INSULIN NOS

REACTIONS (6)
  - Cataract [Unknown]
  - Fluid retention [Unknown]
  - Wrong technique in device usage process [Unknown]
  - Macular degeneration [Unknown]
  - Confusional state [Unknown]
  - Product storage error [Unknown]

NARRATIVE: CASE EVENT DATE: 20180206
